FAERS Safety Report 7389856-0 (Version None)
Quarter: 2011Q2

REPORT INFORMATION
  Report Type: 
  Country: None (occurrence: None)
  Receive Date: 20110401
  Receipt Date: 20110325
  Transmission Date: 20111010
  Serious: Yes (Other)
  Sender: FDA-Public Use
  Company Number: HR-ABBOTT-11P-216-0714290-00

PATIENT
  Age: 36 Year
  Sex: Male
  Weight: 135 kg

DRUGS (4)
  1. TRICOR [Suspect]
     Indication: HYPERTRIGLYCERIDAEMIA
     Route: 048
  2. XENICAL [Suspect]
     Indication: OBESITY
  3. XENICAL [Suspect]
     Indication: HYPERTRIGLYCERIDAEMIA
     Route: 048
     Dates: start: 20110209, end: 20110223
  4. TRICOR [Suspect]
     Indication: OBESITY

REACTIONS (5)
  - VERTIGO [None]
  - ASTHENIA [None]
  - HYPOTENSION [None]
  - SYNCOPE [None]
  - RESTLESSNESS [None]
